FAERS Safety Report 8810195 (Version 1)
Quarter: 2012Q4

REPORT INFORMATION
  Report Type: 
  Country: US (occurrence: US)
  Receive Date: 20120926
  Receipt Date: 20120926
  Transmission Date: 20130627
  Serious: No
  Sender: FDA-Public Use
  Company Number: US-009507513-1209USA009491

PATIENT
  Sex: Female
  Weight: 49.89 kg

DRUGS (4)
  1. IMPLANON [Suspect]
     Indication: CONTRACEPTION
     Dosage: 1 DF, UNK
     Route: 059
     Dates: start: 20090730
  2. IRON (UNSPECIFIED) (+) VITAMINS (UNSPECIFIED) [Concomitant]
  3. MOTRIN [Concomitant]
     Indication: PAIN
     Dosage: UNK, prn
  4. PROAIR (ALBUTEROL SULFATE) [Concomitant]
     Dosage: UNK, prn

REACTIONS (3)
  - Implant site pain [Unknown]
  - Implant site bruising [Unknown]
  - Incorrect drug administration duration [Unknown]
